FAERS Safety Report 5033990-7 (Version None)
Quarter: 2006Q2

REPORT INFORMATION
  Report Type: 
  Country: None (occurrence: None)
  Receive Date: 20060626
  Receipt Date: 20060516
  Transmission Date: 20061013
  Serious: Yes (Hospitalization)
  Sender: FDA-Public Use
  Company Number: 2006AP02277

PATIENT
  Age: 69 Year
  Sex: Female

DRUGS (9)
  1. CRESTOR [Suspect]
     Indication: HYPERCHOLESTEROLAEMIA
     Route: 048
     Dates: start: 20060203, end: 20060327
  2. CRESTOR [Suspect]
     Route: 048
     Dates: start: 20060328, end: 20060409
  3. WARFARIN SODIUM [Concomitant]
     Indication: THROMBOSIS PROPHYLAXIS
     Route: 048
     Dates: start: 20020611
  4. NORVASC [Concomitant]
     Indication: HYPERTENSION
     Route: 048
     Dates: start: 20020611
  5. URINORM [Concomitant]
     Indication: HYPERURICAEMIA
     Route: 048
     Dates: start: 20020611
  6. MARZULENE S [Concomitant]
     Indication: PROPHYLAXIS
     Route: 048
     Dates: start: 20020611
  7. NI [Concomitant]
     Indication: CONSTIPATION
     Route: 048
     Dates: start: 20021126
  8. MYSLEE [Concomitant]
     Indication: INSOMNIA
     Route: 048
     Dates: start: 20040831
  9. BENZALIN [Concomitant]
     Indication: INSOMNIA
     Route: 048
     Dates: start: 20041130

REACTIONS (3)
  - BILE DUCT STONE [None]
  - CHOLECYSTITIS ACUTE [None]
  - PANCREATITIS ACUTE [None]
